FAERS Safety Report 6457513-0 (Version None)
Quarter: 2009Q4

REPORT INFORMATION
  Report Type: 
  Country: None (occurrence: None)
  Receive Date: 20091125
  Receipt Date: 20091124
  Transmission Date: 20100525
  Serious: Yes (Life-Threatening)
  Sender: FDA-Public Use
  Company Number: BR-B.I. PHARMACEUTICALS,INC./RIDGEFIELD-2009-BR-01173BR

PATIENT
  Sex: Female

DRUGS (1)
  1. SECOTEX [Suspect]
     Indication: CALCULUS URETERIC
     Dosage: NR

REACTIONS (2)
  - HYPOTENSION [None]
  - SHOCK [None]
